FAERS Safety Report 8434305-4 (Version None)
Quarter: 2012Q2

REPORT INFORMATION
  Report Type: 
  Country: None (occurrence: None)
  Receive Date: 20120613
  Receipt Date: 20120530
  Transmission Date: 20120825
  Serious: No
  Sender: FDA-Public Use
  Company Number: US-ASTRAZENECA-2012SE35676

PATIENT
  Age: 52 Year
  Sex: Female
  Weight: 77.1 kg

DRUGS (3)
  1. NEXIUM [Suspect]
     Indication: GASTROOESOPHAGEAL REFLUX DISEASE
     Dosage: ONCE DAILY
     Route: 048
  2. PROTONIX [Concomitant]
  3. PRILOSEC OTC [Suspect]
     Indication: GASTROOESOPHAGEAL REFLUX DISEASE
     Dosage: THREE TIMES A DAY
     Route: 048
     Dates: start: 20120501

REACTIONS (5)
  - SLEEP DISORDER DUE TO A GENERAL MEDICAL CONDITION [None]
  - GASTROOESOPHAGEAL REFLUX DISEASE [None]
  - INTENTIONAL DRUG MISUSE [None]
  - SENSATION OF FOREIGN BODY [None]
  - DRUG INEFFECTIVE [None]
